FAERS Safety Report 18434712 (Version 1)
Quarter: 2020Q4

REPORT INFORMATION
  Report Type: Spontaneous
  Country: RO (occurrence: RO)
  Receive Date: 20201028
  Receipt Date: 20201028
  Transmission Date: 20210114
  Serious: Yes (Death, Life-Threatening, Hospitalization, Other)
  Sender: FDA-Public Use
  Company Number: RO-AMGEN-ROUSP2020144590

PATIENT
  Age: 65 Year
  Sex: Female
  Weight: 60 kg

DRUGS (9)
  1. LENALIDOMIDE [Concomitant]
     Active Substance: LENALIDOMIDE
     Indication: PLASMA CELL MYELOMA
     Dosage: 25 MILLIGRAMX1/DAY-21 DAYS/CYCLE
     Dates: start: 20200812, end: 20200814
  2. MILURIT [Concomitant]
     Active Substance: ALLOPURINOL
     Dosage: UNK
  3. ACICLOVIR [Concomitant]
     Active Substance: ACYCLOVIR
     Indication: PROPHYLAXIS
     Dosage: UNK
  4. PRADAXA [Concomitant]
     Active Substance: DABIGATRAN ETEXILATE MESYLATE
     Indication: ANTICOAGULANT THERAPY
     Dosage: UNK
  5. BETALOC [METOPROLOL TARTRATE] [Concomitant]
     Active Substance: METOPROLOL TARTRATE
     Indication: HYPERTENSION
     Dosage: UNK
  6. CAPTOPRIL. [Concomitant]
     Active Substance: CAPTOPRIL
     Indication: HYPERTENSION
     Dosage: UNK
  7. KYPROLIS [Suspect]
     Active Substance: CARFILZOMIB
     Indication: PLASMA CELL MYELOMA
     Dosage: 20 MILLIGRAM/SQ. METER, 2 CONSECUTIVE DAYS
     Route: 042
     Dates: start: 20200812, end: 20200813
  8. DEXAMETAZONA [DEXAMETHASONE] [Concomitant]
     Indication: PLASMA CELL MYELOMA
     Dosage: 40 MILLIGRAM 4 DAYS/CYCLE
     Route: 065
     Dates: start: 20200812, end: 20200812
  9. FUROSEMIDE. [Concomitant]
     Active Substance: FUROSEMIDE
     Indication: HYPERTENSION
     Dosage: UNK

REACTIONS (6)
  - Thrombocytopenia [Unknown]
  - Hepatic failure [Unknown]
  - Anaemia [Unknown]
  - Coma [Unknown]
  - Tumour lysis syndrome [Fatal]
  - Acute kidney injury [Unknown]

NARRATIVE: CASE EVENT DATE: 202008
